FAERS Safety Report 7318982-7 (Version None)
Quarter: 2011Q1

REPORT INFORMATION
  Report Type: 
  Country: None (occurrence: None)
  Receive Date: 20110216
  Receipt Date: 20110202
  Transmission Date: 20110831
  Serious: Yes (Hospitalization)
  Sender: FDA-Public Use
  Company Number: 2011MA001048

PATIENT
  Age: 39 Year

DRUGS (2)
  1. FLECAINE [Suspect]
     Dosage: 8 G
  2. VENLAFAXINE HYDROCHLORIDE [Suspect]

REACTIONS (4)
  - SEPTIC SHOCK [None]
  - BRAIN DEATH [None]
  - COMA [None]
  - TOXICITY TO VARIOUS AGENTS [None]
